FAERS Safety Report 11645630 (Version 1)
Quarter: 2015Q4

REPORT INFORMATION
  Report Type: Not Available
  Country: US (occurrence: US)
  Receive Date: 20151020
  Receipt Date: 20151020
  Transmission Date: 20160304
  Serious: No
  Sender: FDA-Public Use
  Company Number: US-3M-2015-US-000266

PATIENT
  Age: 40 Year
  Sex: Female
  Weight: 38.56 kg

DRUGS (7)
  1. CYTOMEL [Concomitant]
     Active Substance: LIOTHYRONINE SODIUM
  2. STRONTIUM [Concomitant]
     Active Substance: STRONTIUM
  3. DIGESTIVE ENZYME [Concomitant]
     Active Substance: UNSPECIFIED INGREDIENT
  4. CALCIUM [Concomitant]
     Active Substance: CALCIUM
  5. PERIDEX [Suspect]
     Active Substance: CHLORHEXIDINE GLUCONATE
     Route: 048
     Dates: start: 20150209, end: 20150209
  6. VITAMIN C [Concomitant]
     Active Substance: ASCORBIC ACID
  7. SYNTHROID [Concomitant]
     Active Substance: LEVOTHYROXINE SODIUM

REACTIONS (8)
  - Dry mouth [Unknown]
  - Hypoaesthesia [Unknown]
  - Flatulence [Unknown]
  - Abdominal pain [Unknown]
  - Stomatitis [Unknown]
  - Tongue discolouration [Unknown]
  - Swollen tongue [Unknown]
  - Dysgeusia [Unknown]

NARRATIVE: CASE EVENT DATE: 20150209
